FAERS Safety Report 14360253 (Version 2)
Quarter: 2018Q1

REPORT INFORMATION
  Report Type: Spontaneous
  Country: FR (occurrence: FR)
  Receive Date: 20180106
  Receipt Date: 20180213
  Transmission Date: 20180509
  Serious: Yes (Death, Hospitalization)
  Sender: FDA-Public Use
  Company Number: FR-ROCHE-2048998

PATIENT
  Age: 35 Year
  Sex: Female

DRUGS (5)
  1. TACROLIMUS. [Suspect]
     Active Substance: TACROLIMUS
     Indication: LUNG TRANSPLANT
     Route: 065
  2. INSULIN [Concomitant]
     Active Substance: INSULIN NOS
     Indication: DIABETES MELLITUS
     Route: 065
  3. MYCOPHENOLATE MOFETIL. [Suspect]
     Active Substance: MYCOPHENOLATE MOFETIL
     Indication: IMMUNOSUPPRESSANT DRUG THERAPY
     Route: 065
  4. MYCOPHENOLATE MOFETIL. [Suspect]
     Active Substance: MYCOPHENOLATE MOFETIL
     Indication: LUNG TRANSPLANT
     Route: 065
  5. TACROLIMUS. [Suspect]
     Active Substance: TACROLIMUS
     Indication: IMMUNOSUPPRESSANT DRUG THERAPY
     Route: 065

REACTIONS (18)
  - Cytomegalovirus infection [Unknown]
  - Mucormycosis [Unknown]
  - Paraplegia [Fatal]
  - Central nervous system lesion [Fatal]
  - Pyramidal tract syndrome [Fatal]
  - Cerebral haemorrhage [Fatal]
  - Nervous system disorder [Fatal]
  - Acute respiratory failure [Recovering/Resolving]
  - Myelitis [Not Recovered/Not Resolved]
  - Pneumonia influenzal [Recovering/Resolving]
  - Pathogen resistance [Unknown]
  - Necrosis [Fatal]
  - Pleocytosis [Fatal]
  - Meningitis [Fatal]
  - Sciatica [Fatal]
  - Product use in unapproved indication [Fatal]
  - Cerebral fungal infection [Not Recovered/Not Resolved]
  - Urinary incontinence [Fatal]

NARRATIVE: CASE EVENT DATE: 201303
